FAERS Safety Report 17858331 (Version 2)
Quarter: 2020Q2

REPORT INFORMATION
  Report Type: Report from Study
  Country: None (occurrence: US)
  Receive Date: 20200604
  Receipt Date: 20200605
  Transmission Date: 20200714
  Serious: No
  Sender: FDA-Public Use
  Company Number: US-US WORLDMEDS, LLC-USW201906-001179

PATIENT
  Sex: Male

DRUGS (11)
  1. WARFARIN SODIUM. [Concomitant]
     Active Substance: WARFARIN SODIUM
  2. COLACE [Concomitant]
     Active Substance: DOCUSATE SODIUM
  3. RYTARY [Concomitant]
     Active Substance: CARBIDOPA\LEVODOPA
  4. LISINOPRIL. [Concomitant]
     Active Substance: LISINOPRIL
  5. CELEBREX [Concomitant]
     Active Substance: CELECOXIB
  6. AZILECT [Concomitant]
     Active Substance: RASAGILINE MESYLATE
  7. NEUPRO [Concomitant]
     Active Substance: ROTIGOTINE
  8. APOKYN [Suspect]
     Active Substance: APOMORPHINE HYDROCHLORIDE
     Indication: PARKINSON^S DISEASE
     Dosage: 3ML CARTRIDGE 1 EA CART
     Route: 058
  9. SKELAXIN [Concomitant]
     Active Substance: METAXALONE
  10. SIMVASTATIN. [Concomitant]
     Active Substance: SIMVASTATIN
  11. MYOBLOC [Concomitant]
     Active Substance: RIMABOTULINUMTOXINB

REACTIONS (3)
  - Injection site reaction [Unknown]
  - Fall [Unknown]
  - Dizziness [Unknown]
